FAERS Safety Report 6768730-4 (Version None)
Quarter: 2010Q2

REPORT INFORMATION
  Report Type: 
  Country: None (occurrence: None)
  Receive Date: 20100614
  Receipt Date: 20100601
  Transmission Date: 20101027
  Serious: Yes (Hospitalization)
  Sender: FDA-Public Use
  Company Number: IE-MEDIMMUNE-MEDI-0011037

PATIENT
  Sex: Female

DRUGS (4)
  1. SYNAGIS [Suspect]
     Indication: RESPIRATORY SYNCYTIAL VIRUS INFECTION
     Route: 030
     Dates: start: 20091203, end: 20100203
  2. SYNAGIS [Suspect]
     Route: 030
     Dates: start: 20100304, end: 20100401
  3. IRON [Concomitant]
  4. THIAMINE HYDROCHLORIDE [Concomitant]

REACTIONS (2)
  - BRONCHIOLITIS [None]
  - DIARRHOEA [None]
